FAERS Safety Report 18997504 (Version 1)
Quarter: 2021Q1

REPORT INFORMATION
  Report Type: Spontaneous
  Country: AF (occurrence: AF)
  Receive Date: 20210311
  Receipt Date: 20210311
  Transmission Date: 20210420
  Serious: No
  Sender: FDA-Public Use
  Company Number: None

PATIENT
  Age: 27 Year
  Sex: Female

DRUGS (1)
  1. PARAGARD T 380A [Suspect]
     Active Substance: COPPER
     Dosage: ?          OTHER FREQUENCY:ONCE;?
     Route: 005

REACTIONS (5)
  - Embedded device [None]
  - Device breakage [None]
  - Pain [None]
  - Vaginal haemorrhage [None]
  - Complication of device removal [None]

NARRATIVE: CASE EVENT DATE: 20200623
